FAERS Safety Report 9876270 (Version 2)
Quarter: 2014Q1

REPORT INFORMATION
  Report Type: Other
  Country: US (occurrence: US)
  Receive Date: 20140206
  Receipt Date: 20140206
  Transmission Date: 20141002
  Serious: No
  Sender: FDA-Public Use
  Company Number: US-ACORDA-ACO_36831_2013

PATIENT
  Age: 40 Year
  Sex: Female
  Weight: 59.86 kg

DRUGS (2)
  1. AMPYRA [Suspect]
     Indication: MULTIPLE SCLEROSIS
     Dosage: 10 MG, UNK
     Route: 048
     Dates: start: 20130614, end: 2013
  2. REBIF [Concomitant]
     Indication: PRODUCT USED FOR UNKNOWN INDICATION
     Dosage: 22 ?G, THREE TIMES WEEKLY

REACTIONS (2)
  - Visual acuity reduced [Recovered/Resolved]
  - Gait disturbance [Recovered/Resolved]
